FAERS Safety Report 5712832-8 (Version None)
Quarter: 2008Q2

REPORT INFORMATION
  Report Type: 
  Country: None (occurrence: None)
  Receive Date: 20080422
  Receipt Date: 20080411
  Transmission Date: 20081010
  Serious: Yes (Hospitalization, Congenital Anomaly)
  Sender: FDA-Public Use
  Company Number: A0719024A

PATIENT
  Sex: Female
  Weight: 2.8 kg

DRUGS (2)
  1. COMBIVIR [Suspect]
     Indication: HIV INFECTION
     Dosage: 1TAB TWICE PER DAY
     Dates: start: 20070920
  2. KALETRA [Suspect]
     Indication: HIV INFECTION
     Dosage: 2TAB TWICE PER DAY
     Dates: start: 20070920

REACTIONS (16)
  - ANAEMIA [None]
  - CANDIDIASIS [None]
  - CARDIAC MURMUR [None]
  - CLEFT LIP [None]
  - CLEFT PALATE [None]
  - CONGENITAL ECTODERMAL DYSPLASIA [None]
  - CONGENITAL EYELID MALFORMATION [None]
  - CONJUNCTIVITIS [None]
  - DEAFNESS [None]
  - ENLARGED CLITORIS [None]
  - JAUNDICE [None]
  - MOUTH ULCERATION [None]
  - OTITIS MEDIA ACUTE [None]
  - PNEUMONIA RESPIRATORY SYNCYTIAL VIRAL [None]
  - PULMONARY ARTERY STENOSIS CONGENITAL [None]
  - RESPIRATORY SYNCYTIAL VIRUS BRONCHIOLITIS [None]
